FAERS Safety Report 5698379-6 (Version None)
Quarter: 2008Q2

REPORT INFORMATION
  Report Type: 
  Country: None (occurrence: None)
  Receive Date: 20080403
  Receipt Date: 20080328
  Transmission Date: 20081010
  Serious: Yes (Hospitalization)
  Sender: FDA-Public Use
  Company Number: 2008SP005908

PATIENT
  Sex: Female

DRUGS (2)
  1. IMDUR [Suspect]
     Indication: DRUG USE FOR UNKNOWN INDICATION
     Dosage: 60 MG; QD
     Dates: start: 20061120, end: 20080115
  2. MONODUR (ISOSORBIDE MONONITRATE) [Suspect]
     Indication: DRUG USE FOR UNKNOWN INDICATION
     Dosage: 60 MG; QD; PO
     Route: 048
     Dates: start: 20080115, end: 20080212

REACTIONS (5)
  - DRUG INEFFECTIVE [None]
  - HEART VALVE REPLACEMENT [None]
  - ILL-DEFINED DISORDER [None]
  - MEDICATION RESIDUE [None]
  - PNEUMONIA PRIMARY ATYPICAL [None]
